FAERS Safety Report 9335817 (Version 2)
Quarter: 2013Q4

REPORT INFORMATION
  Report Type: Spontaneous
  Country: US (occurrence: US)
  Receive Date: 20130606
  Receipt Date: 20131008
  Transmission Date: 20140711
  Serious: No
  Sender: FDA-Public Use
  Company Number: US-AMGEN-USASP2013027027

PATIENT
  Age: 67 Year
  Sex: Male
  Weight: 80.73 kg

DRUGS (6)
  1. PROLIA [Suspect]
     Indication: OSTEOPOROSIS
     Dosage: 60 MG, Q6MO
     Dates: start: 20130329
  2. BAYER ASPIRIN [Concomitant]
     Dosage: 81 MG, QD
     Route: 048
     Dates: start: 20130129
  3. CYCLOBENZAPRINE [Concomitant]
     Indication: MUSCLE SPASMS
     Dosage: 10 MG, Q8H
     Route: 048
     Dates: start: 20130206
  4. TRAMADOL [Concomitant]
     Indication: PAIN
     Dosage: 50 MG, UNK
     Route: 048
     Dates: start: 20130206
  5. VITAMIN D                          /00107901/ [Concomitant]
     Indication: OSTEOPOROSIS
     Dosage: UNK
     Route: 048
     Dates: start: 20130129
  6. MULTIVITAMIN                       /00097801/ [Concomitant]
     Indication: OSTEOPOROSIS
     Dosage: 600 UNK, QOD
     Route: 048
     Dates: start: 20130129

REACTIONS (11)
  - Vomiting [Recovering/Resolving]
  - Nausea [Recovered/Resolved]
  - Hyperhidrosis [Recovered/Resolved]
  - Headache [Recovered/Resolved]
  - Dyspepsia [Recovered/Resolved]
  - Eructation [Recovered/Resolved]
  - Chest pain [Unknown]
  - Feeling abnormal [Unknown]
  - Chills [Unknown]
  - Asthenia [Recovered/Resolved]
  - Eructation [Unknown]
